FAERS Safety Report 8869500 (Version 2)
Quarter: 2013Q3

REPORT INFORMATION
  Report Type: Spontaneous
  Country: US (occurrence: US)
  Receive Date: 20121023
  Receipt Date: 20130930
  Transmission Date: 20140515
  Serious: Yes (Hospitalization, Other)
  Sender: FDA-Public Use
  Company Number: US-AMGEN-USASP2012049136

PATIENT
  Age: 70 Year
  Sex: Female

DRUGS (2)
  1. ENBREL [Suspect]
     Indication: PSORIASIS
     Dosage: 50 MG, QWK
     Dates: start: 20051026, end: 20121223
  2. LISINOPRIL [Concomitant]
     Dosage: UNK

REACTIONS (6)
  - Angioedema [Recovered/Resolved]
  - Rash generalised [Not Recovered/Not Resolved]
  - Rash erythematous [Not Recovered/Not Resolved]
  - Rash pruritic [Not Recovered/Not Resolved]
  - Eczema asteatotic [Recovering/Resolving]
  - Psoriasis [Not Recovered/Not Resolved]
